FAERS Safety Report 23528653 (Version 2)
Quarter: 2024Q1

REPORT INFORMATION
  Report Type: Report from Study
  Country: TW (occurrence: TW)
  Receive Date: 20240215
  Receipt Date: 20240329
  Transmission Date: 20240409
  Serious: Yes (Other)
  Sender: FDA-Public Use
  Company Number: TW-ABBVIE-5623246

PATIENT
  Age: 63 Year
  Sex: Male

DRUGS (3)
  1. RINVOQ [Suspect]
     Active Substance: UPADACITINIB
     Indication: Rheumatoid arthritis
     Route: 048
     Dates: start: 20230119
  2. ATORVASTATIN [Concomitant]
     Active Substance: ATORVASTATIN
     Indication: Hypercholesterolaemia
     Dosage: 40MG/QOD
     Route: 048
     Dates: start: 20230103
  3. METHOTREXATE [Concomitant]
     Active Substance: METHOTREXATE
     Indication: Rheumatoid arthritis
     Dosage: 10MG/QW
     Route: 048
     Dates: start: 20210203

REACTIONS (3)
  - Mycobacterial infection [Recovering/Resolving]
  - Neck mass [Unknown]
  - Pulmonary tuberculosis [Unknown]

NARRATIVE: CASE EVENT DATE: 20231101
